FAERS Safety Report 8519557-4 (Version None)
Quarter: 2012Q3

REPORT INFORMATION
  Report Type: 
  Country: None (occurrence: None)
  Receive Date: 20120718
  Receipt Date: 20120709
  Transmission Date: 20120928
  Serious: Yes (Hospitalization)
  Sender: FDA-Public Use
  Company Number: FR-FRI-1000037171

PATIENT
  Sex: Female

DRUGS (10)
  1. KETOPROFEN [Suspect]
     Indication: PAIN
     Route: 048
     Dates: start: 20120210, end: 20120216
  2. VALIUM [Concomitant]
     Dosage: 45 DF
     Route: 048
     Dates: end: 20120422
  3. FLUCONAZOLE [Concomitant]
     Indication: FUNGAL INFECTION
     Dosage: 100 MG
     Route: 048
     Dates: start: 20120418, end: 20120422
  4. LOVENOX [Concomitant]
     Indication: THROMBOSIS PROPHYLAXIS
     Dosage: 0.4 ML
     Route: 058
     Dates: end: 20120422
  5. FUNGIZONE [Concomitant]
     Indication: FUNGAL INFECTION
     Route: 002
     Dates: start: 20120418, end: 20120422
  6. VOLARENE [Concomitant]
     Indication: PAIN
     Dates: start: 20120401, end: 20120401
  7. ESCITALOPRAM [Suspect]
     Indication: DEPRESSION
     Dosage: 15 MG
     Route: 048
     Dates: start: 20120404, end: 20120422
  8. ACETAMINOPHEN [Suspect]
     Indication: PAIN
     Dosage: 4 G
     Route: 048
     Dates: end: 20120422
  9. TRAMADOL HCL [Suspect]
     Indication: PAIN
     Route: 048
     Dates: start: 20120210, end: 20120216
  10. TERCIAN [Concomitant]
     Dosage: 20 DF
     Route: 048
     Dates: end: 20120422

REACTIONS (1)
  - CYTOLYTIC HEPATITIS [None]
